FAERS Safety Report 17569181 (Version 1)
Quarter: 2020Q1

REPORT INFORMATION
  Report Type: Spontaneous
  Country: US (occurrence: US)
  Receive Date: 20200316
  Receipt Date: 20200316
  Transmission Date: 20200409
  Serious: No
  Sender: FDA-Public Use
  Company Number: None

PATIENT
  Sex: Female

DRUGS (1)
  1. HUMIRA [Suspect]
     Active Substance: ADALIMUMAB
     Indication: RHEUMATOID ARTHRITIS
     Dosage: ?          OTHER DOSE:40MG/0.4ML;OTHER FREQUENCY:EVERY 2 WEEKS;?
     Dates: start: 20191011

REACTIONS (3)
  - Injection site swelling [None]
  - Therapy cessation [None]
  - Injection site erythema [None]
